FAERS Safety Report 19158036 (Version 1)
Quarter: 2021Q2

REPORT INFORMATION
  Report Type: Spontaneous
  Country: US (occurrence: US)
  Receive Date: 20210420
  Receipt Date: 20210420
  Transmission Date: 20210717
  Serious: No
  Sender: FDA-Public Use
  Company Number: US-ORGANON-2102USA004844

PATIENT
  Sex: Female
  Weight: 49.84 kg

DRUGS (2)
  1. NEXPLANON [Suspect]
     Active Substance: ETONOGESTREL
     Dosage: 1 ROD EVERY 3 YEARS
     Route: 059
     Dates: start: 20210210
  2. NEXPLANON [Suspect]
     Active Substance: ETONOGESTREL
     Dosage: 1 ROD EVERY 3 YEARS, LEFT UPPER ARM
     Route: 059
     Dates: start: 20210210, end: 20210210

REACTIONS (7)
  - Wrong technique in product usage process [Unknown]
  - No adverse event [Unknown]
  - Complication associated with device [Recovered/Resolved]
  - Device use issue [Unknown]
  - Overdose [Unknown]
  - Poor quality device used [Unknown]
  - Product quality issue [Unknown]

NARRATIVE: CASE EVENT DATE: 20210210
